FAERS Safety Report 23731200 (Version 2)
Quarter: 2024Q2

REPORT INFORMATION
  Report Type: Report from Study
  Country: US (occurrence: US)
  Receive Date: 20240411
  Receipt Date: 20240509
  Transmission Date: 20240716
  Serious: Yes (Other)
  Sender: FDA-Public Use
  Company Number: US-UCBSA-2023048483

PATIENT
  Sex: Male

DRUGS (1)
  1. LEVETIRACETAM [Suspect]
     Active Substance: LEVETIRACETAM
     Indication: Seizure
     Dosage: 2000 MILLIGRAM, 2X/DAY (BID)

REACTIONS (8)
  - Lymphoma [Not Recovered/Not Resolved]
  - Neoplasm malignant [Not Recovered/Not Resolved]
  - Oropharyngeal pain [Not Recovered/Not Resolved]
  - Hypersensitivity [Not Recovered/Not Resolved]
  - Chemotherapy [Not Recovered/Not Resolved]
  - Radiotherapy [Not Recovered/Not Resolved]
  - Central venous catheterisation [Not Recovered/Not Resolved]
  - Overdose [Unknown]
